FAERS Safety Report 13998098 (Version 1)
Quarter: 2017Q3

REPORT INFORMATION
  Report Type: Spontaneous
  Country: US (occurrence: US)
  Receive Date: 20170921
  Receipt Date: 20170921
  Transmission Date: 20171128
  Serious: Yes (Hospitalization)
  Sender: FDA-Public Use
  Company Number: US-VIFOR (INTERNATIONAL) INC.-VIT-2016-04696

PATIENT
  Age: 81 Year
  Sex: Male

DRUGS (9)
  1. XARELTO [Concomitant]
     Active Substance: RIVAROXABAN
  2. DIGOXIN. [Concomitant]
     Active Substance: DIGOXIN
  3. COUMADIN [Concomitant]
     Active Substance: WARFARIN SODIUM
  4. VELTASSA [Suspect]
     Active Substance: PATIROMER
     Indication: HYPERKALAEMIA
     Route: 048
     Dates: start: 20160719
  5. COUMADIN [Concomitant]
     Active Substance: WARFARIN SODIUM
  6. COUMADIN [Concomitant]
     Active Substance: WARFARIN SODIUM
  7. TOPROL XL [Concomitant]
     Active Substance: METOPROLOL SUCCINATE
  8. COUMADIN [Concomitant]
     Active Substance: WARFARIN SODIUM
  9. ATORVASTATIN [Concomitant]
     Active Substance: ATORVASTATIN

REACTIONS (4)
  - Product physical issue [Unknown]
  - Constipation [Recovering/Resolving]
  - Treatment noncompliance [Unknown]
  - Heart valve replacement [Recovering/Resolving]

NARRATIVE: CASE EVENT DATE: 20160814
